FAERS Safety Report 18446118 (Version 4)
Quarter: 2021Q3

REPORT INFORMATION
  Report Type: Spontaneous
  Country: US (occurrence: US)
  Receive Date: 20201030
  Receipt Date: 20210818
  Transmission Date: 20211014
  Serious: No
  Sender: FDA-Public Use
  Company Number: US-AKCEA THERAPEUTICS-2020IS001315

PATIENT
  Age: 57 Year
  Sex: Male
  Weight: 100.05 kg

DRUGS (3)
  1. TEGSEDI [Suspect]
     Active Substance: INOTERSEN SODIUM
     Indication: HEREDITARY NEUROPATHIC AMYLOIDOSIS
     Route: 058
  2. TEGSEDI [Suspect]
     Active Substance: INOTERSEN SODIUM
     Route: 065
     Dates: end: 2021
  3. ISSD (INTEGRATED SYRINGE SAFETY DEVICE) [Suspect]
     Active Substance: DEVICE

REACTIONS (9)
  - Urinary casts [Unknown]
  - Laboratory test interference [Unknown]
  - Urine protein/creatinine ratio abnormal [Unknown]
  - Protein urine present [Unknown]
  - Urine abnormality [Unknown]
  - Bacterial test positive [Unknown]
  - Platelet count decreased [Not Recovered/Not Resolved]
  - Crystal urine present [Unknown]
  - Glomerular filtration rate decreased [Unknown]
